FAERS Safety Report 4529608-X (Version None)
Quarter: 2004Q4

REPORT INFORMATION
  Report Type: 
  Country: None (occurrence: None)
  Receive Date: 20041215
  Receipt Date: 20041215
  Transmission Date: 20050328
  Serious: Yes (Life-Threatening)
  Sender: FDA-Public Use
  Company Number: None

PATIENT
  Age: 50 Year
  Sex: Female
  Weight: 72.5755 kg

DRUGS (3)
  1. ZONALON [Suspect]
     Dosage: CREAM APPLIED TO TORSO 2X DAILY FOR 8 CONSEC DAYS
     Route: 061
     Dates: start: 20040811, end: 20040820
  2. ZONALON [Suspect]
     Indication: PRURITUS
     Dosage: 5%, BID, TOPICAL
     Route: 061
     Dates: start: 20040801
  3. ALLEGRA [Concomitant]

REACTIONS (2)
  - DIZZINESS [None]
  - NAUSEA [None]
